FAERS Safety Report 4839457-0 (Version None)
Quarter: 2005Q4

REPORT INFORMATION
  Report Type: 
  Country: None (occurrence: None)
  Receive Date: 20051129
  Receipt Date: 20051004
  Transmission Date: 20060501
  Serious: Yes (Hospitalization, Other)
  Sender: FDA-Public Use
  Company Number: US-MERCK-0510USA03172

PATIENT
  Age: 63 Year
  Sex: Male
  Weight: 90 kg

DRUGS (6)
  1. VIOXX [Suspect]
     Indication: ARTHRITIS
     Route: 048
     Dates: start: 20000401, end: 20040801
  2. LIPITOR [Concomitant]
     Route: 065
  3. LORTAB [Concomitant]
     Route: 065
  4. RESTORIL [Concomitant]
     Route: 065
  5. VALIUM [Concomitant]
     Route: 065
  6. TEMAZEPAM [Concomitant]
     Route: 065

REACTIONS (5)
  - ARTERIAL OCCLUSIVE DISEASE [None]
  - CHEST PAIN [None]
  - MYOCARDIAL INFARCTION [None]
  - NEPHROLITHIASIS [None]
  - PROSTATIC DISORDER [None]
